FAERS Safety Report 8965102 (Version 1)
Quarter: 2012Q4

REPORT INFORMATION
  Report Type: 
  Country: US (occurrence: US)
  Receive Date: 20121213
  Receipt Date: 20121213
  Transmission Date: 20130627
  Serious: Yes (Other)
  Sender: FDA-Public Use
  Company Number: US-BRISTOL-MYERS SQUIBB COMPANY-17052267

PATIENT
  Age: 25 Year
  Sex: Male

DRUGS (2)
  1. PRAVACHOL [Suspect]
  2. PROGRAF [Suspect]
     Indication: IMMUNOSUPPRESSION
     Dosage: Initially 2 mg and dose was increased to 3 mg twic daily

REACTIONS (1)
  - Myositis [Unknown]
